FAERS Safety Report 4707084-1 (Version None)
Quarter: 2005Q3

REPORT INFORMATION
  Report Type: 
  Country: None (occurrence: None)
  Receive Date: 20050701
  Receipt Date: 20050620
  Transmission Date: 20060218
  Serious: Yes (Other)
  Sender: FDA-Public Use
  Company Number: US-2005-003622

PATIENT
  Age: 59 Year
  Sex: Female
  Weight: 49.9 kg

DRUGS (3)
  1. BETASERON [Suspect]
     Indication: MULTIPLE SCLEROSIS
     Dosage: 8 MIU, SUBCUTANEOUS
     Route: 058
     Dates: start: 20031010, end: 20031110
  2. DEPAKOTE [Concomitant]
  3. TRAZODONE (TRAZODONE) [Concomitant]

REACTIONS (4)
  - HALLUCINATION [None]
  - PARANOIA [None]
  - PSYCHOTIC DISORDER [None]
  - SCHIZOPHRENIFORM DISORDER [None]
